FAERS Safety Report 9303000 (Version 2)
Quarter: 2014Q2

REPORT INFORMATION
  Report Type: Spontaneous
  Country: IT (occurrence: IT)
  Receive Date: 20130522
  Receipt Date: 20140422
  Transmission Date: 20141212
  Serious: Yes (Hospitalization)
  Sender: FDA-Public Use
  Company Number: IT-PFIZER INC-2013156804

PATIENT
  Age: 34 Year
  Sex: Female

DRUGS (1)
  1. HALCION [Suspect]
     Dosage: 19 DF, TOTAL
     Route: 048
     Dates: start: 20130220, end: 20130220

REACTIONS (4)
  - Drug abuse [Recovering/Resolving]
  - Loss of consciousness [Recovering/Resolving]
  - Sopor [Recovering/Resolving]
  - Toxicity to various agents [Recovering/Resolving]
